FAERS Safety Report 16581710 (Version 4)
Quarter: 2020Q1

REPORT INFORMATION
  Report Type: Report from Study
  Country: US (occurrence: US)
  Receive Date: 20190716
  Receipt Date: 20200306
  Transmission Date: 20200409
  Serious: Yes (Hospitalization)
  Sender: FDA-Public Use
  Company Number: US-ACTELION-A-NJ2019-189075

PATIENT
  Age: 64 Year
  Sex: Male

DRUGS (16)
  1. METHOCARBAMOL. [Concomitant]
     Active Substance: METHOCARBAMOL
  2. VITAMIN E [Concomitant]
     Active Substance: .ALPHA.-TOCOPHEROL
  3. OMEPRAZOLE. [Concomitant]
     Active Substance: OMEPRAZOLE
  4. EPLERENONE. [Concomitant]
     Active Substance: EPLERENONE
  5. METOPROLOL. [Concomitant]
     Active Substance: METOPROLOL
  6. METAMUCIL [Concomitant]
     Active Substance: PLANTAGO SEED
  7. POTASSIUM CHLORIDE. [Concomitant]
     Active Substance: POTASSIUM CHLORIDE
  8. OPSUMIT [Suspect]
     Active Substance: MACITENTAN
     Indication: PULMONARY ARTERIAL HYPERTENSION
     Dosage: 10 MG, QD
     Route: 048
     Dates: start: 20161111
  9. VITAMIN C [Concomitant]
     Active Substance: ASCORBIC ACID
  10. FERROUS SULFATE. [Concomitant]
     Active Substance: FERROUS SULFATE
  11. PROPOXYPHENE HYDROCHLORIDE. [Concomitant]
     Active Substance: PROPOXYPHENE HYDROCHLORIDE
  12. ADCIRCA [Concomitant]
     Active Substance: TADALAFIL
  13. SPIRONOLACTONE. [Concomitant]
     Active Substance: SPIRONOLACTONE
  14. ALPRAZOLAM. [Concomitant]
     Active Substance: ALPRAZOLAM
  15. FUROSEMIDE. [Concomitant]
     Active Substance: FUROSEMIDE
  16. PRILOSEC [Concomitant]
     Active Substance: OMEPRAZOLE MAGNESIUM

REACTIONS (6)
  - Anaemia [Unknown]
  - Blood count abnormal [Not Recovered/Not Resolved]
  - Malaise [Unknown]
  - Blood iron decreased [Unknown]
  - Transfusion [Not Recovered/Not Resolved]
  - Adverse event [Not Recovered/Not Resolved]

NARRATIVE: CASE EVENT DATE: 201903
